FAERS Safety Report 22324866 (Version 2)
Quarter: 2023Q2

REPORT INFORMATION
  Report Type: Spontaneous
  Country: CN (occurrence: None)
  Receive Date: 20230516
  Receipt Date: 20230522
  Transmission Date: 20230722
  Serious: Yes (Hospitalization, Other)
  Sender: FDA-Public Use
  Company Number: CN-ROCHE-3349170

PATIENT
  Age: 61 Year
  Sex: Male

DRUGS (3)
  1. GAVRETO [Suspect]
     Active Substance: PRALSETINIB
     Indication: Lung adenocarcinoma
     Route: 048
     Dates: start: 20220401, end: 20230101
  2. GAVRETO [Suspect]
     Active Substance: PRALSETINIB
     Indication: Neuroendocrine carcinoma
     Route: 048
     Dates: start: 20230111, end: 20230330
  3. GAVRETO [Suspect]
     Active Substance: PRALSETINIB
     Route: 048
     Dates: start: 20230331, end: 20230502

REACTIONS (10)
  - Metastases to central nervous system [Unknown]
  - Infection [Recovered/Resolved]
  - Myelosuppression [Recovered/Resolved]
  - Intestinal obstruction [Recovered/Resolved]
  - Tumour marker increased [Unknown]
  - ALK gene rearrangement positive [Unknown]
  - COVID-19 [Recovered/Resolved]
  - Discomfort [Unknown]
  - Constipation [Recovered/Resolved]
  - Decreased appetite [Recovered/Resolved]

NARRATIVE: CASE EVENT DATE: 20230101
